FAERS Safety Report 5373372-1 (Version None)
Quarter: 2007Q2

REPORT INFORMATION
  Report Type: 
  Country: None (occurrence: None)
  Receive Date: 20070628
  Receipt Date: 20070620
  Transmission Date: 20071010
  Serious: Yes (Disabling)
  Sender: FDA-Public Use
  Company Number: DE-JNJFOC-20070602089

PATIENT
  Age: 81 Year
  Sex: Male

DRUGS (2)
  1. LEVOFLOXACIN [Suspect]
     Indication: VIRAL INFECTION
     Route: 048
  2. MARCUMAR [Concomitant]
     Route: 065

REACTIONS (3)
  - HYPOGEUSIA [None]
  - HYPOSMIA [None]
  - TENDON DISORDER [None]
